FAERS Safety Report 9901602 (Version 2)
Quarter: 2014Q1

REPORT INFORMATION
  Report Type: Spontaneous
  Country: US (occurrence: US)
  Receive Date: 20140217
  Receipt Date: 20140217
  Transmission Date: 20141002
  Serious: Yes (Other)
  Sender: FDA-Public Use
  Company Number: US-GILEAD-2011-0044467

PATIENT
  Sex: Male

DRUGS (8)
  1. LETAIRIS [Suspect]
     Indication: PULMONARY HYPERTENSION
     Dosage: 5 MG, UNK
     Route: 048
     Dates: start: 20110726, end: 20110927
  2. LETAIRIS [Suspect]
     Indication: INTERSTITIAL LUNG DISEASE
  3. LETAIRIS [Suspect]
     Indication: ASTHMA
  4. LETAIRIS [Suspect]
     Indication: ATRIAL FIBRILLATION
  5. LETAIRIS [Suspect]
     Indication: SICK SINUS SYNDROME
  6. LETAIRIS [Suspect]
     Indication: ENDOCARDITIS
  7. LETAIRIS [Suspect]
     Indication: SLEEP APNOEA SYNDROME
  8. REVATIO [Concomitant]

REACTIONS (3)
  - Drug ineffective [Unknown]
  - Fatigue [Unknown]
  - Dyspnoea [Unknown]
